FAERS Safety Report 5750082-X (Version None)
Quarter: 2008Q2

REPORT INFORMATION
  Report Type: 
  Country: None (occurrence: None)
  Receive Date: 20080527
  Receipt Date: 20080519
  Transmission Date: 20081010
  Serious: Yes (Other)
  Sender: FDA-Public Use
  Company Number: FR-ABBOTT-08P-056-0452674-00

PATIENT
  Age: 74 Year
  Sex: Female

DRUGS (2)
  1. VALPROATE DE SODIUM [Suspect]
     Indication: EPILEPSY
     Route: 048
     Dates: start: 20080401
  2. VALPROATE DE SODIUM [Suspect]
     Dates: start: 20040101, end: 20080401

REACTIONS (2)
  - EPILEPSY [None]
  - THERAPEUTIC RESPONSE UNEXPECTED WITH DRUG SUBSTITUTION [None]
